FAERS Safety Report 7667754-2 (Version None)
Quarter: 2011Q3

REPORT INFORMATION
  Report Type: 
  Country: None (occurrence: None)
  Receive Date: 20110806
  Receipt Date: 20110303
  Transmission Date: 20111222
  Serious: No
  Sender: FDA-Public Use
  Company Number: US-ABBOTT-11P-163-0708876-00

PATIENT
  Sex: Female
  Weight: 65.83 kg

DRUGS (9)
  1. PLAVIX [Concomitant]
     Indication: STENT PLACEMENT
     Dates: start: 20101001
  2. SIMVASTATIN [Concomitant]
     Indication: BLOOD CHOLESTEROL
  3. VIT D [Concomitant]
     Indication: PRODUCT USED FOR UNKNOWN INDICATION
  4. LOSARTAN POTASSIUM [Concomitant]
     Indication: BLOOD PRESSURE
  5. ASPIRIN [Concomitant]
     Indication: PRODUCT USED FOR UNKNOWN INDICATION
  6. NIASPAN [Suspect]
     Indication: BLOOD CHOLESTEROL
     Dates: start: 20110216
  7. NIASPAN [Suspect]
     Dates: end: 20110216
  8. METOPROLOL TARTRATE [Concomitant]
     Indication: PRODUCT USED FOR UNKNOWN INDICATION
  9. HYDROCHLOROTHIAZIDE [Concomitant]
     Indication: PRODUCT USED FOR UNKNOWN INDICATION

REACTIONS (1)
  - FLUSHING [None]
